FAERS Safety Report 9919775 (Version 4)
Quarter: 2015Q2

REPORT INFORMATION
  Report Type: Spontaneous
  Country: US (occurrence: US)
  Receive Date: 20140224
  Receipt Date: 20150407
  Transmission Date: 20150821
  Serious: No
  Sender: FDA-Public Use
  Company Number: US-PFIZER INC-2014050616

PATIENT
  Age: 52 Year
  Sex: Female

DRUGS (12)
  1. NEXIUM [Concomitant]
     Active Substance: ESOMEPRAZOLE MAGNESIUM
     Dosage: UNK
  2. NEURONTIN [Suspect]
     Active Substance: GABAPENTIN
     Indication: ARTHRALGIA
     Dosage: 300 MG, 1X/DAY
     Route: 048
     Dates: start: 20100812
  3. ACCUPRIL [Concomitant]
     Active Substance: QUINAPRIL HYDROCHLORIDE
     Dosage: UNK
  4. ACCURETIC [Concomitant]
     Active Substance: HYDROCHLOROTHIAZIDE\QUINAPRIL HYDROCHLORIDE
     Dosage: UNK
  5. DULERA [Concomitant]
     Active Substance: FORMOTEROL FUMARATE DIHYDRATE\MOMETASONE FUROATE
     Dosage: UNK
  6. PROVENTIL HFA [Concomitant]
     Active Substance: ALBUTEROL SULFATE
     Dosage: UNK
  7. NEURONTIN [Suspect]
     Active Substance: GABAPENTIN
     Indication: FIBROMYALGIA
  8. CELEBREX [Concomitant]
     Active Substance: CELECOXIB
     Dosage: 200 MG, BID AS NEEDED
  9. PROCARDIA XL [Concomitant]
     Active Substance: NIFEDIPINE
     Dosage: UNK
  10. DETROL LA [Concomitant]
     Active Substance: TOLTERODINE TARTRATE
     Dosage: UNK
  11. CYMBALTA [Concomitant]
     Active Substance: DULOXETINE HYDROCHLORIDE
     Dosage: UNK
  12. CRESTOR [Concomitant]
     Active Substance: ROSUVASTATIN CALCIUM
     Dosage: UNK

REACTIONS (4)
  - Drug prescribing error [Unknown]
  - Drug hypersensitivity [Unknown]
  - Product use issue [Unknown]
  - Depression [Recovered/Resolved]
